FAERS Safety Report 17786324 (Version 1)
Quarter: 2020Q2

REPORT INFORMATION
  Report Type: Spontaneous
  Country: US (occurrence: US)
  Receive Date: 20200514
  Receipt Date: 20200514
  Transmission Date: 20200714
  Serious: Yes (Other)
  Sender: FDA-Public Use
  Company Number: US-TEVA-2020-US-1235234

PATIENT
  Sex: Male

DRUGS (9)
  1. BELSOMRA [Suspect]
     Active Substance: SUVOREXANT
     Route: 065
  2. PERCOCET [Suspect]
     Active Substance: ACETAMINOPHEN\OXYCODONE HYDROCHLORIDE
     Route: 065
  3. GLIPIZIDE. [Suspect]
     Active Substance: GLIPIZIDE
     Route: 065
  4. JANUVIA [Suspect]
     Active Substance: SITAGLIPTIN PHOSPHATE
     Route: 065
  5. AMITRIPTYLINE [Suspect]
     Active Substance: AMITRIPTYLINE
     Route: 065
  6. OMEPRAZOLE. [Suspect]
     Active Substance: OMEPRAZOLE
     Route: 065
  7. METOPROLOL. [Suspect]
     Active Substance: METOPROLOL
     Route: 065
  8. ATORVASTATIN [Suspect]
     Active Substance: ATORVASTATIN
     Route: 065
  9. SPIRONOLACTONE. [Suspect]
     Active Substance: SPIRONOLACTONE
     Route: 065

REACTIONS (6)
  - Insomnia [Unknown]
  - Parkinson^s disease [Unknown]
  - Crying [Unknown]
  - Muscle tightness [Unknown]
  - Spinal operation [Unknown]
  - Back pain [Unknown]
